FAERS Safety Report 6157701-7 (Version None)
Quarter: 2009Q2

REPORT INFORMATION
  Report Type: 
  Country: None (occurrence: None)
  Receive Date: 20090414
  Receipt Date: 20081120
  Transmission Date: 20091009
  Serious: Yes (Hospitalization)
  Sender: FDA-Public Use
  Company Number: HCDA20080005

PATIENT
  Age: 69 Year
  Sex: Male

DRUGS (26)
  1. ACETAMINOPHEN AND HYDROCODONE BITARTRATE [Suspect]
     Indication: COUGH
     Dates: start: 20050401
  2. KETEK [Suspect]
     Indication: PNEUMONIA
     Dates: start: 20050402, end: 20050404
  3. TEQUIN [Suspect]
     Indication: PNEUMONIA
     Dates: start: 20050405
  4. SIMVASTATIN [Suspect]
     Indication: HYPERLIPIDAEMIA
  5. WARFARIN SODIUM [Concomitant]
  6. ADENOSINE [Concomitant]
  7. TRICOR [Concomitant]
  8. HUMAN INSULIN [Concomitant]
  9. INSULIN [Concomitant]
  10. ALLOPURINOL [Concomitant]
  11. PIOGLITAZONE [Concomitant]
  12. NITROGLYCERIN [Concomitant]
  13. MECLIZINE [Concomitant]
  14. VITAMIN B COMPLEX CAP [Concomitant]
  15. COPHERYL ACETATE [Concomitant]
  16. FLUTICASONE PROPIONATE [Concomitant]
  17. AMIODARONE HCL [Concomitant]
  18. HYZAAR [Concomitant]
  19. ISOSORBIDE MONONITRATE [Concomitant]
  20. TRIAMETERENE [Concomitant]
  21. HYDROCHLOROTHIAZIDE [Concomitant]
  22. RESTORIL [Concomitant]
  23. SULFA [Concomitant]
  24. METRONIDAZOLE [Concomitant]
  25. POTASSIUM CHLORIDE [Concomitant]
  26. PHOSPHORUS [Concomitant]

REACTIONS (17)
  - ACUTE RESPIRATORY DISTRESS SYNDROME [None]
  - ANAEMIA [None]
  - BILE DUCT OBSTRUCTION [None]
  - BILIARY DILATATION [None]
  - CHOLELITHIASIS [None]
  - ENCEPHALOPATHY [None]
  - HAEMODIALYSIS [None]
  - HEPATIC FAILURE [None]
  - HEPATITIS ACUTE [None]
  - HYPOTENSION [None]
  - INTERNATIONAL NORMALISED RATIO INCREASED [None]
  - MULTI-ORGAN FAILURE [None]
  - NAUSEA [None]
  - PAIN [None]
  - PANCREATITIS [None]
  - RENAL FAILURE ACUTE [None]
  - VOMITING [None]
